FAERS Safety Report 10271729 (Version 1)
Quarter: 2014Q3

REPORT INFORMATION
  Report Type: Spontaneous
  Country: US (occurrence: US)
  Receive Date: 20140701
  Receipt Date: 20140701
  Transmission Date: 20150326
  Serious: No
  Sender: FDA-Public Use
  Company Number: US-SA-2014SA045721

PATIENT
  Age: 18 Year
  Sex: Female
  Weight: 54.4 kg

DRUGS (7)
  1. SALINE [Concomitant]
     Active Substance: SODIUM CHLORIDE
  2. SODIUM CHLORIDE. [Concomitant]
     Active Substance: SODIUM CHLORIDE
  3. CEREZYME [Suspect]
     Active Substance: IMIGLUCERASE
     Indication: GAUCHER^S DISEASE
     Route: 042
     Dates: start: 20100120
  4. VITAMIN D [Concomitant]
     Active Substance: CHOLECALCIFEROL
  5. EPIPEN [Concomitant]
     Active Substance: EPINEPHRINE
  6. ADVIL [Concomitant]
     Active Substance: IBUPROFEN
  7. CALCIUM [Concomitant]
     Active Substance: CALCIUM

REACTIONS (1)
  - Infection [Unknown]
